FAERS Safety Report 7681636-1 (Version None)
Quarter: 2011Q3

REPORT INFORMATION
  Report Type: 
  Country: None (occurrence: None)
  Receive Date: 20110812
  Receipt Date: 20110804
  Transmission Date: 20111222
  Serious: Yes (Other)
  Sender: FDA-Public Use
  Company Number: PHEH2011US01034

PATIENT

DRUGS (1)
  1. GILENYA [Suspect]
     Dosage: UNK UKN, UNK

REACTIONS (1)
  - HELICOBACTER GASTRITIS [None]
